FAERS Safety Report 6140031-7 (Version None)
Quarter: 2009Q2

REPORT INFORMATION
  Report Type: 
  Country: None (occurrence: None)
  Receive Date: 20090401
  Receipt Date: 20090319
  Transmission Date: 20091009
  Serious: Yes (Other)
  Sender: FDA-Public Use
  Company Number: JP-JNJFOC-20090301879

PATIENT
  Sex: Male

DRUGS (15)
  1. TOPINA [Suspect]
     Route: 048
  2. TOPINA [Suspect]
     Route: 048
  3. TOPINA [Suspect]
     Route: 048
  4. TOPINA [Suspect]
     Indication: EPILEPSY
     Route: 048
  5. TEGRETOL [Concomitant]
     Indication: EPILEPSY
     Route: 048
  6. EXCEGRAN [Concomitant]
     Indication: EPILEPSY
     Route: 048
  7. LANDSEN [Concomitant]
     Route: 048
  8. LANDSEN [Concomitant]
     Route: 048
  9. LANDSEN [Concomitant]
     Route: 048
  10. LANDSEN [Concomitant]
     Indication: EPILEPSY
     Route: 048
  11. MYSTAN [Concomitant]
     Route: 048
  12. MYSTAN [Concomitant]
     Route: 048
  13. MYSTAN [Concomitant]
     Route: 048
  14. MYSTAN [Concomitant]
     Indication: EPILEPSY
     Route: 048
  15. SAIKO-KA-RYUKOTSU-BOREI-TO [Concomitant]
     Route: 048

REACTIONS (5)
  - DELUSION [None]
  - GAMMA-GLUTAMYLTRANSFERASE INCREASED [None]
  - HALLUCINATION [None]
  - PORIOMANIA [None]
  - WHITE BLOOD CELL COUNT INCREASED [None]
